FAERS Safety Report 7283648-9 (Version None)
Quarter: 2011Q1

REPORT INFORMATION
  Report Type: 
  Country: None (occurrence: None)
  Receive Date: 20110209
  Receipt Date: 20110131
  Transmission Date: 20110831
  Serious: Yes (Other)
  Sender: FDA-Public Use
  Company Number: US-ROCHE-744867

PATIENT
  Sex: Female
  Weight: 55.3 kg

DRUGS (3)
  1. TARCEVA [Suspect]
     Indication: LUNG ADENOCARCINOMA METASTATIC
     Route: 048
     Dates: start: 20091111
  2. ZOMETA [Concomitant]
     Route: 042
  3. AVASTIN [Suspect]
     Indication: LUNG ADENOCARCINOMA METASTATIC
     Dosage: 954 MG AND 893 MG
     Route: 042
     Dates: start: 20091111, end: 20101111

REACTIONS (2)
  - MUSCULAR WEAKNESS [None]
  - DEMYELINATION [None]
